FAERS Safety Report 23006093 (Version 2)
Quarter: 2024Q1

REPORT INFORMATION
  Report Type: Spontaneous
  Country: IT (occurrence: IT)
  Receive Date: 20230929
  Receipt Date: 20240306
  Transmission Date: 20240410
  Serious: Yes (Death, Other)
  Sender: FDA-Public Use
  Company Number: IT-WATSON-2013-04241

PATIENT
  Age: 53 Year
  Sex: Female

DRUGS (1)
  1. LORAZEPAM [Suspect]
     Active Substance: LORAZEPAM
     Indication: Product used for unknown indication
     Dosage: UNK UNK, SINGLE (200)
     Route: 065

REACTIONS (3)
  - Sedation [Fatal]
  - Intentional product misuse [Fatal]
  - Anosmia [Unknown]
